FAERS Safety Report 15275303 (Version 1)
Quarter: 2018Q3

REPORT INFORMATION
  Report Type: Spontaneous
  Country: FR (occurrence: FR)
  Receive Date: 20180814
  Receipt Date: 20180814
  Transmission Date: 20181010
  Serious: Yes (Death, Hospitalization, Other)
  Sender: FDA-Public Use
  Company Number: FR-TEVA-2018-FR-939906

PATIENT
  Age: 30 Year
  Sex: Male
  Weight: 68.5 kg

DRUGS (2)
  1. GEMCITABINE [Suspect]
     Active Substance: GEMCITABINE\GEMCITABINE HYDROCHLORIDE
     Indication: LARYNGEAL CANCER
     Dosage: 2 CYCLES
     Route: 065
  2. OPDIVO [Suspect]
     Active Substance: NIVOLUMAB
     Indication: LARYNGEAL CANCER
     Dosage: 3 MG/KG, Q2WK
     Route: 042
     Dates: start: 20170804, end: 20170922

REACTIONS (10)
  - Nodule [Fatal]
  - Haematuria [Fatal]
  - Scrotal swelling [Fatal]
  - Seizure [Fatal]
  - Death [Fatal]
  - Pleural effusion [Fatal]
  - Pancytopenia [Fatal]
  - Malignant neoplasm progression [Fatal]
  - Status epilepticus [Fatal]
  - Wound infection [Fatal]

NARRATIVE: CASE EVENT DATE: 201710
